FAERS Safety Report 8476258-9 (Version None)
Quarter: 2012Q2

REPORT INFORMATION
  Report Type: 
  Country: None (occurrence: None)
  Receive Date: 20120628
  Receipt Date: 20120626
  Transmission Date: 20120825
  Serious: No
  Sender: FDA-Public Use
  Company Number: US-TEVA-345450USA

PATIENT
  Sex: Female
  Weight: 54.026 kg

DRUGS (4)
  1. ZYRTEC [Concomitant]
     Indication: FOOD ALLERGY
  2. EVEY WOMAN'S IRON SUPPORT [Concomitant]
     Indication: ANAEMIA
  3. ZYRTEC [Concomitant]
     Indication: SEASONAL ALLERGY
  4. PLAN B ONE-STEP [Suspect]
     Indication: POST COITAL CONTRACEPTION
     Dosage: 1.5 MILLIGRAM;
     Route: 048
     Dates: start: 20120619, end: 20120619

REACTIONS (5)
  - BREAST PAIN [None]
  - PELVIC PAIN [None]
  - HEADACHE [None]
  - MENSTRUATION IRREGULAR [None]
  - NAUSEA [None]
